FAERS Safety Report 14350509 (Version 2)
Quarter: 2018Q1

REPORT INFORMATION
  Report Type: Spontaneous
  Country: US (occurrence: US)
  Receive Date: 20180104
  Receipt Date: 20180302
  Transmission Date: 20180509
  Serious: Yes (Hospitalization)
  Sender: FDA-Public Use
  Company Number: US-VERTEX PHARMACEUTICALS-2018-000045

PATIENT
  Age: 17 Year
  Sex: Male

DRUGS (6)
  1. KALYDECO [Suspect]
     Active Substance: IVACAFTOR
     Indication: CYSTIC FIBROSIS
     Dosage: 150 MG, BID
     Route: 048
     Dates: start: 20170912
  2. TOBI [Concomitant]
     Active Substance: TOBRAMYCIN
  3. PREVACID [Concomitant]
     Active Substance: LANSOPRAZOLE
  4. ZYVOX [Concomitant]
     Active Substance: LINEZOLID
  5. PULMOZYME [Concomitant]
     Active Substance: DORNASE ALFA
  6. HUMIRA [Concomitant]
     Active Substance: ADALIMUMAB

REACTIONS (1)
  - Pneumonia [Unknown]

NARRATIVE: CASE EVENT DATE: 201712
